FAERS Safety Report 11554675 (Version 1)
Quarter: 2015Q3

REPORT INFORMATION
  Report Type: Spontaneous
  Country: BE (occurrence: BE)
  Receive Date: 20150925
  Receipt Date: 20150925
  Transmission Date: 20151125
  Serious: Yes (Other)
  Sender: FDA-Public Use
  Company Number: BE-BAUSCH-BL-2015-021953

PATIENT
  Age: 25 Year
  Sex: Male

DRUGS (17)
  1. PREDNISOLONE. [Suspect]
     Active Substance: PREDNISOLONE
     Indication: ARTHRITIS
     Dosage: 10 MG/DAY
     Route: 065
     Dates: start: 2007
  2. PREDNISOLONE. [Suspect]
     Active Substance: PREDNISOLONE
     Dosage: 10 MG/DAY
     Dates: start: 2011
  3. CYCLOSPORINE. [Suspect]
     Active Substance: CYCLOSPORINE
     Indication: ARTHRITIS
  4. PIROXICAM. [Concomitant]
     Active Substance: PIROXICAM
     Indication: SPINAL OSTEOARTHRITIS
     Dosage: 20 MG DAILY
     Dates: start: 2003
  5. METHYLPREDNISOLONE. [Suspect]
     Active Substance: METHYLPREDNISOLONE
     Indication: POLYCHONDRITIS
     Dosage: 16 MG DAILY
     Route: 065
     Dates: start: 2006
  6. CYCLOPHOSPHAMIDE. [Suspect]
     Active Substance: CYCLOPHOSPHAMIDE
     Indication: PYREXIA
  7. PREDNISOLONE. [Suspect]
     Active Substance: PREDNISOLONE
     Indication: POLYCHONDRITIS
     Dosage: 20 MG/DAY
     Dates: start: 2011
  8. INFLIXIMAB [Suspect]
     Active Substance: INFLIXIMAB
     Dosage: DOSE FREQUENCY INCREASED TO FOUR TIMES WEEKLY
     Dates: start: 2011
  9. SULFASALAZINE. [Concomitant]
     Active Substance: SULFASALAZINE
     Indication: SPINAL OSTEOARTHRITIS
     Dosage: 3 G DAILY
     Dates: start: 2003
  10. PREDNISOLONE. [Suspect]
     Active Substance: PREDNISOLONE
     Dates: start: 201105
  11. PREDNISOLONE. [Suspect]
     Active Substance: PREDNISOLONE
     Dosage: 20 MG/DAY
     Dates: start: 2011
  12. METHOTREXATE [Suspect]
     Active Substance: METHOTREXATE
     Indication: POLYCHONDRITIS
     Dosage: 10 MG WEEKLY
     Route: 065
     Dates: start: 2006
  13. METHOTREXATE [Suspect]
     Active Substance: METHOTREXATE
     Dates: start: 2011
  14. CYCLOSPORINE. [Suspect]
     Active Substance: CYCLOSPORINE
     Indication: POLYCHONDRITIS
     Dosage: 200 MG/DAY
     Route: 065
     Dates: start: 2007
  15. ETANERCEPT [Concomitant]
     Active Substance: ETANERCEPT
     Indication: SPINAL OSTEOARTHRITIS
     Dosage: 50 MG, ONCE A WEEK
     Route: 058
     Dates: start: 200305
  16. CYCLOPHOSPHAMIDE. [Suspect]
     Active Substance: CYCLOPHOSPHAMIDE
     Indication: POLYARTHRITIS
     Dosage: 500 MG EVERY 3 WEEKS
     Route: 042
     Dates: start: 2011
  17. INFLIXIMAB [Suspect]
     Active Substance: INFLIXIMAB
     Indication: POLYARTHRITIS
     Dosage: 5 MG/KG EIGHT TIMES WEEKLY
     Route: 065
     Dates: start: 201105

REACTIONS (1)
  - Polychondritis [Recovered/Resolved]
